FAERS Safety Report 21955407 (Version 1)
Quarter: 2023Q1

REPORT INFORMATION
  Report Type: Spontaneous
  Country: CH (occurrence: CH)
  Receive Date: 20230206
  Receipt Date: 20230206
  Transmission Date: 20230417
  Serious: Yes (Other)
  Sender: FDA-Public Use
  Company Number: CH-NOVOPROD-1010266

PATIENT
  Age: 44 Year
  Sex: Female
  Weight: 96 kg

DRUGS (2)
  1. OZEMPIC [Suspect]
     Active Substance: SEMAGLUTIDE
     Indication: Product used for unknown indication
     Dosage: UNK
     Dates: start: 202209
  2. OZEMPIC [Suspect]
     Active Substance: SEMAGLUTIDE
     Dosage: GRADUALLY INCREASED DOSES
     Dates: end: 20221220

REACTIONS (1)
  - Depression suicidal [Recovered/Resolved]

NARRATIVE: CASE EVENT DATE: 20221215
